FAERS Safety Report 5110086-7 (Version None)
Quarter: 2006Q3

REPORT INFORMATION
  Report Type: 
  Country: None (occurrence: None)
  Receive Date: 20060919
  Receipt Date: 20060919
  Transmission Date: 20061208
  Serious: Yes (Hospitalization)
  Sender: FDA-Public Use
  Company Number: None

PATIENT
  Age: 45 Year
  Sex: Female
  Weight: 67.9 kg

DRUGS (2)
  1. DACLIZUMAB [Suspect]
     Indication: INTERMEDIATE UVEITIS
     Dosage: 2 MG/KG PER DOSE EVERY 4 WEEKS
     Dates: start: 20050510, end: 20050929
  2. DACLIZUMAB [Suspect]
     Indication: INTERMEDIATE UVEITIS
     Dosage: 2 MG/KG PER DOSE EVERY 4 WEEKS
     Dates: start: 20051201, end: 20060126

REACTIONS (4)
  - DYSPNOEA EXERTIONAL [None]
  - FATIGUE [None]
  - HAEMOGLOBIN DECREASED [None]
  - MALAISE [None]
